FAERS Safety Report 15880162 (Version 1)
Quarter: 2019Q1

REPORT INFORMATION
  Report Type: Spontaneous
  Country: FR (occurrence: FR)
  Receive Date: 20190128
  Receipt Date: 20190128
  Transmission Date: 20190417
  Serious: Yes (Life-Threatening, Hospitalization)
  Sender: FDA-Public Use
  Company Number: FR-TEVA-2019-FR-1004459

PATIENT
  Age: 43 Year
  Sex: Female
  Weight: 73.4 kg

DRUGS (7)
  1. PREDNISOLONE. [Concomitant]
     Active Substance: PREDNISOLONE
  2. AIROMIR [Concomitant]
     Active Substance: ALBUTEROL SULFATE
  3. SPIRIVA [Concomitant]
     Active Substance: TIOTROPIUM BROMIDE MONOHYDRATE
  4. KETOPROFENE [Suspect]
     Active Substance: KETOPROFEN
     Indication: ABDOMINAL PAIN
     Route: 048
     Dates: start: 20180919, end: 20180919
  5. SYMBICORT TURBUHALER 400/12 MICROGRAMMES/DOSE, POUDRE POUR INHALATION [Concomitant]
  6. ESOMEPRAZOLE. [Concomitant]
     Active Substance: ESOMEPRAZOLE MAGNESIUM
  7. AVAMYS [Concomitant]
     Active Substance: FLUTICASONE FUROATE

REACTIONS (1)
  - Angioedema [Recovered/Resolved]

NARRATIVE: CASE EVENT DATE: 20180919
